FAERS Safety Report 8793874 (Version 3)
Quarter: 2015Q2

REPORT INFORMATION
  Report Type: Report from Study
  Country: US (occurrence: US)
  Receive Date: 20120918
  Receipt Date: 20150428
  Transmission Date: 20150821
  Serious: Yes (Hospitalization)
  Sender: FDA-Public Use
  Company Number: US-009507513-1112USA00192

PATIENT
  Age: 57 Year
  Sex: Female
  Weight: 70.4 kg

DRUGS (20)
  1. REBETOL [Suspect]
     Active Substance: RIBAVIRIN
     Dosage: 3 DF, PM
     Route: 048
     Dates: start: 20111129, end: 20111219
  2. EFFEXOR [Concomitant]
     Active Substance: VENLAFAXINE HYDROCHLORIDE
     Indication: DEPRESSION
     Dosage: 2 DF, QD
     Route: 048
     Dates: start: 200301
  3. PEGINTRON [Suspect]
     Active Substance: PEGINTERFERON ALFA-2B
     Indication: CHRONIC HEPATITIS C
     Dosage: 0.4 ML, QW
     Route: 058
     Dates: start: 20110920
  4. REBETOL [Suspect]
     Active Substance: RIBAVIRIN
     Dosage: 3 DF, PM
     Route: 048
     Dates: start: 20120104, end: 20120114
  5. WELLBUTRIN XL [Concomitant]
     Active Substance: BUPROPION HYDROCHLORIDE
     Indication: DEPRESSION
     Dosage: 1 DF, QD
     Route: 048
     Dates: start: 200701
  6. DEPLIN [Concomitant]
     Active Substance: LEVOMEFOLATE CALCIUM
     Indication: ROUTINE HEALTH MAINTENANCE
     Dosage: 1 DF, QD
     Dates: start: 20110601
  7. MK-5172 [Suspect]
     Active Substance: GRAZOPREVIR ANHYDROUS
     Indication: CHRONIC HEPATITIS C
     Dosage: 400 MG, QD
     Route: 048
     Dates: start: 20110920, end: 20111123
  8. REBETOL [Suspect]
     Active Substance: RIBAVIRIN
     Dosage: 3 DF, PM
     Route: 048
     Dates: start: 20120116, end: 20120307
  9. REBETOL [Suspect]
     Active Substance: RIBAVIRIN
     Dosage: 2 DF, AM
     Route: 048
     Dates: start: 20120306, end: 20120308
  10. VALTREX [Concomitant]
     Active Substance: VALACYCLOVIR HYDROCHLORIDE
     Indication: HERPES VIRUS INFECTION
     Dosage: 1 DF, QD
     Route: 048
     Dates: start: 200101
  11. REBETOL [Suspect]
     Active Substance: RIBAVIRIN
     Dosage: 2 DF, AM
     Route: 048
     Dates: start: 20110920, end: 20111005
  12. REBETOL [Suspect]
     Active Substance: RIBAVIRIN
     Dosage: 2 DF, AM
     Route: 048
     Dates: start: 20111117, end: 20111123
  13. REBETOL [Suspect]
     Active Substance: RIBAVIRIN
     Dosage: 2 DF, PM
     Route: 048
     Dates: start: 20111220, end: 20120103
  14. LYSINE [Concomitant]
     Active Substance: LYSINE
     Indication: HERPES VIRUS INFECTION
     Dosage: 1 DF, QD
     Route: 048
     Dates: start: 199001
  15. IBUPROFEN. [Concomitant]
     Active Substance: IBUPROFEN
     Indication: PROPHYLAXIS
     Dosage: 1 TABLET, PRN
     Route: 048
     Dates: start: 20110920, end: 20120529
  16. REBETOL [Suspect]
     Active Substance: RIBAVIRIN
     Indication: CHRONIC HEPATITIS C
     Dosage: 3 DF, PM
     Route: 048
     Dates: start: 20110920, end: 20111122
  17. REBETOL [Suspect]
     Active Substance: RIBAVIRIN
     Dosage: 2 DF, AM
     Route: 048
     Dates: start: 20111007, end: 20111123
  18. REBETOL [Suspect]
     Active Substance: RIBAVIRIN
     Dosage: 2 DF, AM
     Route: 048
     Dates: start: 20120117, end: 20120304
  19. VITAMIN B COMPLEX [Concomitant]
     Active Substance: CYANOCOBALAMIN\DEXPANTHENOL\NIACINAMIDE\PYRIDOXINE HYDROCHLORIDE\RIBOFLAVIN 5^-PHOSPHATE SODIUM\THIAMINE HYDROCHLORIDE\VITAMIN B COMPLEX
     Indication: ROUTINE HEALTH MAINTENANCE
     Dosage: 1 DF, QD
     Route: 048
     Dates: start: 198201
  20. REBETOL [Suspect]
     Active Substance: RIBAVIRIN
     Dosage: 2 DF, AM
     Route: 048
     Dates: start: 20111129, end: 20120115

REACTIONS (1)
  - Dehydration [Recovered/Resolved with Sequelae]

NARRATIVE: CASE EVENT DATE: 20111123
